FAERS Safety Report 8810328 (Version 1)
Quarter: 2012Q4

REPORT INFORMATION
  Report Type: 
  Country: US (occurrence: US)
  Receive Date: 20120926
  Receipt Date: 20120926
  Transmission Date: 20130627
  Serious: Yes (Death, Hospitalization, Disabling, Other)
  Sender: FDA-Public Use
  Company Number: US-009507513-1201USA02553

PATIENT

DRUGS (1)
  1. FOSAMAX [Suspect]
     Indication: OSTEOPOROSIS
     Dosage: 70 mg, qw
     Route: 048
     Dates: start: 200206, end: 200604

REACTIONS (11)
  - Femur fracture [Not Recovered/Not Resolved]
  - Intramedullary rod insertion [Unknown]
  - Respiratory arrest [Fatal]
  - Multi-organ failure [Fatal]
  - Arteriosclerosis coronary artery [Fatal]
  - Renal failure [Unknown]
  - Cardiovascular disorder [Unknown]
  - Gastroenteritis [Unknown]
  - Diverticulitis [Unknown]
  - Spinal fracture [Unknown]
  - Back pain [Not Recovered/Not Resolved]
